FAERS Safety Report 4561387-2 (Version None)
Quarter: 2005Q1

REPORT INFORMATION
  Report Type: 
  Country: None (occurrence: None)
  Receive Date: 20050126
  Receipt Date: 20041230
  Transmission Date: 20050727
  Serious: Yes (Other)
  Sender: FDA-Public Use
  Company Number: US-ROCHE-390861

PATIENT
  Age: 72 Year
  Sex: Female
  Weight: 88.5 kg

DRUGS (3)
  1. NAPROXEN [Suspect]
     Indication: DRUG USE FOR UNKNOWN INDICATION
     Route: 065
     Dates: start: 20041215, end: 20041216
  2. ALEVE [Suspect]
     Route: 048
     Dates: start: 20041217, end: 20041219
  3. PREVACID [Concomitant]
     Dates: end: 20041215

REACTIONS (2)
  - CHEST PAIN [None]
  - ELECTROCARDIOGRAM ABNORMAL [None]
